FAERS Safety Report 18233336 (Version 1)
Quarter: 2020Q3

REPORT INFORMATION
  Report Type: Spontaneous
  Country: HR (occurrence: HR)
  Receive Date: 20200904
  Receipt Date: 20200904
  Transmission Date: 20201103
  Serious: Yes (Other)
  Sender: FDA-Public Use
  Company Number: HR-009507513-2008HRV014764

PATIENT
  Age: 15 Year
  Sex: Female
  Weight: 60 kg

DRUGS (3)
  1. AERIUS (DESLORATADINE) [Suspect]
     Active Substance: DESLORATADINE
     Dosage: 120 MILLIGRAM, QD
     Route: 048
     Dates: start: 20200727, end: 20200727
  2. ROSWERA [Suspect]
     Active Substance: ROSUVASTATIN
     Dosage: 140 MILLIGRAM, QD
     Route: 048
     Dates: start: 20200727, end: 20200727
  3. LUPOCET [Suspect]
     Active Substance: ACETAMINOPHEN
     Dosage: 2500 MILLIGRAM, QD
     Route: 048
     Dates: start: 20200727, end: 20200727

REACTIONS (4)
  - Drug abuse [Unknown]
  - Suicide attempt [Unknown]
  - Intentional overdose [Unknown]
  - No adverse event [Unknown]

NARRATIVE: CASE EVENT DATE: 20200727
